FAERS Safety Report 5017789-3 (Version None)
Quarter: 2006Q2

REPORT INFORMATION
  Report Type: 
  Country: None (occurrence: None)
  Receive Date: 20060530
  Receipt Date: 20050228
  Transmission Date: 20061013
  Serious: Yes (Other)
  Sender: FDA-Public Use
  Company Number: 2005039657

PATIENT
  Age: 41 Year
  Sex: Male
  Weight: 73 kg

DRUGS (3)
  1. LYRICA [Suspect]
     Indication: NEURALGIA
     Dosage: (50 MG), ORAL
     Route: 048
     Dates: start: 20050201, end: 20050218
  2. MODAFINIL [Concomitant]
  3. PARAML-118 (DIHYDROCODEINE BITARTRATE, PARACETAMOL) [Concomitant]

REACTIONS (2)
  - ARTHRALGIA [None]
  - URINE ODOUR ABNORMAL [None]
